FAERS Safety Report 5677427-3 (Version None)
Quarter: 2008Q1

REPORT INFORMATION
  Report Type: 
  Country: None (occurrence: None)
  Receive Date: 20080324
  Receipt Date: 20080314
  Transmission Date: 20080703
  Serious: Yes (Other)
  Sender: FDA-Public Use
  Company Number: JP-PFIZER INC-2008024280

PATIENT
  Age: 70 Year
  Sex: Male

DRUGS (2)
  1. SOLANAX [Suspect]
     Route: 048
  2. ALL OTHER THERAPEUTIC PRODUCTS [Suspect]
     Route: 048

REACTIONS (4)
  - COMA [None]
  - MIOSIS [None]
  - OVERDOSE [None]
  - SUICIDE ATTEMPT [None]
